FAERS Safety Report 12746340 (Version 2)
Quarter: 2017Q1

REPORT INFORMATION
  Report Type: Other
  Country: FR (occurrence: FR)
  Receive Date: 20160915
  Receipt Date: 20170117
  Transmission Date: 20170428
  Serious: Yes (Hospitalization)
  Sender: FDA-Public Use
  Company Number: FR-VALIDUS PHARMACEUTICALS LLC-FR-2016VAL002644

PATIENT
  Age: 69 Year
  Sex: Female

DRUGS (16)
  1. PIPERACILLIN/TAZOBACTAM [Suspect]
     Active Substance: PIPERACILLIN SODIUM\TAZOBACTAM SODIUM
     Indication: STERNITIS
     Dosage: 4 G, TID
     Route: 042
     Dates: start: 20160601, end: 20160620
  2. TIORFAN [Suspect]
     Active Substance: RACECADOTRIL
     Indication: DIARRHOEA
     Dosage: 100 MG, TID
     Route: 048
     Dates: start: 20160625, end: 20160708
  3. FUMAFER [Suspect]
     Active Substance: FERROUS FUMARATE
     Indication: ANAEMIA
     Dosage: 66 MG, BID
     Route: 048
     Dates: start: 20160602, end: 20160708
  4. CALCIPARINE [Suspect]
     Active Substance: HEPARIN CALCIUM
     Indication: THROMBOSIS PROPHYLAXIS
     Dosage: 0.4 ML, QD
     Route: 058
     Dates: start: 20160626, end: 20160628
  5. KARDEGIC [Suspect]
     Active Substance: ASPIRIN LYSINE
     Indication: PRODUCT USED FOR UNKNOWN INDICATION
     Dosage: 75 MG, QD
     Route: 048
     Dates: start: 20160602
  6. AMLOR [Suspect]
     Active Substance: AMLODIPINE BESYLATE
     Indication: PRODUCT USED FOR UNKNOWN INDICATION
     Dosage: UNK
     Route: 048
     Dates: start: 20160625, end: 20160708
  7. CORDARONE [Suspect]
     Active Substance: AMIODARONE HYDROCHLORIDE
     Indication: ATRIAL FIBRILLATION
     Dosage: UNK
     Route: 048
     Dates: start: 20160602, end: 20160701
  8. GAVISCON [Suspect]
     Active Substance: ALUMINUM HYDROXIDE\MAGNESIUM CARBONATE
     Indication: PRODUCT USED FOR UNKNOWN INDICATION
     Dosage: 1 DOSAGE FORM; TID
     Route: 048
     Dates: start: 20160615, end: 20160623
  9. VANCOMYCIN [Suspect]
     Active Substance: VANCOMYCIN
     Indication: STERNITIS
     Dosage: 2 G, QD
     Route: 042
     Dates: start: 20160601, end: 20160620
  10. FUROSEMIDE. [Suspect]
     Active Substance: FUROSEMIDE
     Indication: CARDIAC FAILURE
     Dosage: 40 MG, QD
     Route: 048
     Dates: start: 20160510, end: 20160626
  11. DOLIPRANEORO [Suspect]
     Active Substance: ACETAMINOPHEN
     Indication: PRODUCT USED FOR UNKNOWN INDICATION
     Dosage: 500 MG, BID
     Route: 048
     Dates: start: 20160615, end: 20160622
  12. LOVENOX [Suspect]
     Active Substance: ENOXAPARIN SODIUM
     Indication: THROMBOSIS PROPHYLAXIS
     Dosage: 0.4 ML, QD
     Route: 058
     Dates: start: 20160509, end: 20160625
  13. RIMACTAN [Suspect]
     Active Substance: RIFAMPIN
     Indication: STERNITIS
     Dosage: 300 MG, BID
     Route: 048
     Dates: start: 20160620, end: 20160628
  14. DALACINE [Suspect]
     Active Substance: CLINDAMYCIN HYDROCHLORIDE
     Indication: STERNITIS
     Dosage: 300 MG, UNK
     Route: 048
     Dates: start: 20160620, end: 20160628
  15. DIFFU K [Suspect]
     Active Substance: POTASSIUM CHLORIDE
     Indication: HYPOKALAEMIA
     Dosage: 600 MG, UNK
     Route: 048
     Dates: start: 20160611, end: 20160622
  16. AMBROXOL [Suspect]
     Active Substance: AMBROXOL
     Indication: BRONCHIAL DISORDER
     Dosage: 1 DOSAGE FORM; TID
     Route: 048
     Dates: start: 20160611, end: 20160614

REACTIONS (1)
  - Drug reaction with eosinophilia and systemic symptoms [Recovered/Resolved with Sequelae]

NARRATIVE: CASE EVENT DATE: 20160627
